FAERS Safety Report 14037035 (Version 2)
Quarter: 2019Q1

REPORT INFORMATION
  Report Type: Spontaneous
  Country: US (occurrence: US)
  Receive Date: 20171004
  Receipt Date: 20190215
  Transmission Date: 20190417
  Serious: No
  Sender: FDA-Public Use
  Company Number: US-009507513-1709USA014006

PATIENT
  Sex: Female
  Weight: 101.59 kg

DRUGS (1)
  1. ZOCOR [Suspect]
     Active Substance: SIMVASTATIN
     Dosage: UNK
     Route: 048

REACTIONS (1)
  - Myalgia [Unknown]
